FAERS Safety Report 17718547 (Version 1)
Quarter: 2020Q2

REPORT INFORMATION
  Report Type: Spontaneous
  Country: US (occurrence: US)
  Receive Date: 20200428
  Receipt Date: 20200428
  Transmission Date: 20200714
  Serious: No
  Sender: FDA-Public Use
  Company Number: US-ELI_LILLY_AND_COMPANY-US202004010120

PATIENT
  Age: 47 Year
  Sex: Male

DRUGS (1)
  1. EMGALITY [Suspect]
     Active Substance: GALCANEZUMAB-GNLM
     Indication: MIGRAINE PROPHYLAXIS
     Dosage: 120 MG, UNKNOWN
     Dates: start: 20200327

REACTIONS (6)
  - Underdose [Unknown]
  - Headache [Unknown]
  - Erythema [Unknown]
  - Rash [Recovering/Resolving]
  - Allodynia [Unknown]
  - Facial pain [Unknown]

NARRATIVE: CASE EVENT DATE: 20200327
